FAERS Safety Report 4707835-6 (Version None)
Quarter: 2005Q3

REPORT INFORMATION
  Report Type: 
  Country: None (occurrence: None)
  Receive Date: 20050705
  Receipt Date: 20050705
  Transmission Date: 20060218
  Serious: No
  Sender: FDA-Public Use
  Company Number: None

PATIENT
  Age: 59 Year
  Sex: Female

DRUGS (1)
  1. GADOLINIUM [Suspect]
     Indication: NUCLEAR MAGNETIC RESONANCE IMAGING
     Dates: start: 20050420, end: 20050420

REACTIONS (4)
  - CHEST PAIN [None]
  - DYSPNOEA [None]
  - PROCEDURAL COMPLICATION [None]
  - VOMITING [None]
